FAERS Safety Report 6597068-3 (Version None)
Quarter: 2010Q1

REPORT INFORMATION
  Report Type: 
  Country: None (occurrence: None)
  Receive Date: 20100223
  Receipt Date: 20100217
  Transmission Date: 20100710
  Serious: Yes (Life-Threatening)
  Sender: FDA-Public Use
  Company Number: B0634239A

PATIENT
  Sex: Female

DRUGS (14)
  1. BACTROBAN [Suspect]
     Indication: STAPHYLOCOCCAL INFECTION
     Dosage: 1APP THREE TIMES PER DAY
     Route: 045
     Dates: start: 20091121, end: 20091207
  2. TARGOCID [Suspect]
     Indication: STAPHYLOCOCCAL INFECTION
     Dosage: 1UNIT TWICE PER DAY
     Route: 065
     Dates: start: 20091117, end: 20091126
  3. GENTAMICINE [Suspect]
     Dosage: 1UNIT SINGLE DOSE
     Route: 030
     Dates: start: 20091124, end: 20091124
  4. IXPRIM [Concomitant]
     Indication: PAIN
     Route: 048
  5. TEMESTA [Concomitant]
     Route: 048
  6. TIORFAN [Concomitant]
     Route: 048
  7. XYZAL [Concomitant]
     Route: 048
  8. TRACLEER [Concomitant]
     Indication: PULMONARY ARTERIAL HYPERTENSION
     Route: 065
  9. FLOLAN [Concomitant]
     Indication: PULMONARY ARTERIAL HYPERTENSION
     Route: 065
  10. REVATIO [Concomitant]
     Indication: PULMONARY ARTERIAL HYPERTENSION
     Route: 048
  11. GAVISCON [Concomitant]
     Route: 048
  12. NEXIUM [Concomitant]
     Route: 048
  13. BACTRIM DS [Concomitant]
     Route: 065
     Dates: start: 20091126, end: 20091207
  14. RIFADIN [Concomitant]
     Route: 065
     Dates: start: 20091126, end: 20091130

REACTIONS (7)
  - C-REACTIVE PROTEIN INCREASED [None]
  - DYSPNOEA [None]
  - HYPERTHERMIA [None]
  - LEUKOPENIA [None]
  - PRURITUS [None]
  - RASH MORBILLIFORM [None]
  - THROMBOCYTOPENIA [None]
